FAERS Safety Report 14352018 (Version 1)
Quarter: 2018Q1

REPORT INFORMATION
  Report Type: Spontaneous
  Country: US (occurrence: US)
  Receive Date: 20180103
  Receipt Date: 20180103
  Transmission Date: 20180509
  Serious: Yes (Hospitalization)
  Sender: FDA-Public Use
  Company Number: None

PATIENT
  Sex: Female

DRUGS (5)
  1. ESOMEPRAZOLE [Concomitant]
     Active Substance: ESOMEPRAZOLE
  2. HYDROMORPHONE [Suspect]
     Active Substance: HYDROMORPHONE
  3. NEURONTIN [Concomitant]
     Active Substance: GABAPENTIN
  4. CYCLOBENZAPRINE. [Concomitant]
     Active Substance: CYCLOBENZAPRINE
  5. STIVARGA [Suspect]
     Active Substance: REGORAFENIB
     Indication: GASTRIC CANCER
     Dosage: 4 TABLETS DAILY X 21 DAYS ORAL
     Route: 048
     Dates: start: 20170718, end: 20180103

REACTIONS (1)
  - Hospitalisation [None]
